FAERS Safety Report 9373882 (Version 1)
Quarter: 2013Q2

REPORT INFORMATION
  Report Type: Spontaneous
  Country: US (occurrence: US)
  Receive Date: 20130628
  Receipt Date: 20130628
  Transmission Date: 20140414
  Serious: Yes (Death, Hospitalization)
  Sender: FDA-Public Use
  Company Number: US-PAR PHARMACEUTICAL, INC-2013SCPR005997

PATIENT
  Sex: 0

DRUGS (1)
  1. MORPHINE SULFATE [Suspect]
     Indication: PRODUCT USED FOR UNKNOWN INDICATION
     Dosage: 1.2 G, UNKNOWN
     Route: 048

REACTIONS (8)
  - Completed suicide [Fatal]
  - Renal failure acute [Unknown]
  - Intentional overdose [Fatal]
  - Death [Fatal]
  - Cardiac arrest [Fatal]
  - Myoclonus [Fatal]
  - Somnolence [Unknown]
  - Respiratory rate decreased [Unknown]
